FAERS Safety Report 6064804-4 (Version None)
Quarter: 2009Q1

REPORT INFORMATION
  Report Type: 
  Country: None (occurrence: None)
  Receive Date: 20090203
  Receipt Date: 20090203
  Transmission Date: 20090719
  Serious: Yes (Hospitalization)
  Sender: FDA-Public Use
  Company Number: None

PATIENT
  Age: 51 Year

DRUGS (4)
  1. ZANAFLEX [Suspect]
     Indication: MUSCLE SPASMS
     Dosage: TAKE 1 CAPSULE TWICE A DAY
     Dates: start: 20070701
  2. LORTAB [Concomitant]
  3. DURAGESIC-100 [Concomitant]
  4. ZOFRZN [Concomitant]

REACTIONS (3)
  - DYSPNOEA [None]
  - ERYTHEMA [None]
  - URTICARIA [None]
